FAERS Safety Report 17328847 (Version 2)
Quarter: 2020Q1

REPORT INFORMATION
  Report Type: Spontaneous
  Country: RU (occurrence: RU)
  Receive Date: 20200127
  Receipt Date: 20200225
  Transmission Date: 20200409
  Serious: Yes (Hospitalization, Other)
  Sender: FDA-Public Use
  Company Number: RU-PFIZER INC-2020028893

PATIENT
  Age: 94 Year
  Sex: Male

DRUGS (1)
  1. METHYLPREDNISOLONE. [Suspect]
     Active Substance: METHYLPREDNISOLONE
     Indication: EVANS SYNDROME
     Dosage: 8 MG, UNK
     Dates: start: 2015

REACTIONS (4)
  - Osteoporosis [Unknown]
  - Spinal compression fracture [Unknown]
  - Osteochondrosis [Unknown]
  - Lordosis [Unknown]

NARRATIVE: CASE EVENT DATE: 201603
